FAERS Safety Report 6129711-7 (Version None)
Quarter: 2009Q1

REPORT INFORMATION
  Report Type: 
  Country: None (occurrence: None)
  Receive Date: 20090324
  Receipt Date: 20090317
  Transmission Date: 20090719
  Serious: Yes (Disabling)
  Sender: FDA-Public Use
  Company Number: GB-AVENTIS-200912753GDDC

PATIENT
  Age: 24 Year
  Sex: Female

DRUGS (3)
  1. METRONIDAZOLE [Suspect]
     Indication: PROPHYLAXIS
     Dates: start: 20090219, end: 20090226
  2. CORSODYL [Suspect]
     Indication: DENTAL CARE
     Route: 061
     Dates: start: 20090219, end: 20090221
  3. YASMIN [Concomitant]
     Indication: CONTRACEPTION

REACTIONS (2)
  - NAUSEA [None]
  - VOMITING [None]
